FAERS Safety Report 6412305-3 (Version None)
Quarter: 2009Q4

REPORT INFORMATION
  Report Type: 
  Country: None (occurrence: None)
  Receive Date: 20091023
  Receipt Date: 20091016
  Transmission Date: 20100525
  Serious: Yes (Death)
  Sender: FDA-Public Use
  Company Number: US-BIOGENIDEC-2009BI027422

PATIENT
  Age: 60 Year
  Sex: Male

DRUGS (10)
  1. AVONEX [Suspect]
     Indication: MULTIPLE SCLEROSIS
     Route: 030
     Dates: start: 20041218
  2. NOVANTRONE [Concomitant]
     Indication: MULTIPLE SCLEROSIS
     Dates: start: 20050101
  3. BACLOFEN [Concomitant]
  4. ZOCOR [Concomitant]
  5. VIAGRA [Concomitant]
  6. XANAX [Concomitant]
  7. ZYPREXA [Concomitant]
  8. FLOMAX [Concomitant]
  9. NITROFURANTOIN [Concomitant]
  10. WELLBUTRIN [Concomitant]

REACTIONS (3)
  - MULTIPLE SCLEROSIS [None]
  - POLLAKIURIA [None]
  - PROGRESSIVE MULTIPLE SCLEROSIS [None]
